FAERS Safety Report 7638070-X (Version None)
Quarter: 2011Q3

REPORT INFORMATION
  Report Type: 
  Country: None (occurrence: None)
  Receive Date: 20110720
  Receipt Date: 20110708
  Transmission Date: 20111222
  Serious: Yes (Other)
  Sender: FDA-Public Use
  Company Number: 2011P1007652

PATIENT
  Age: 61 Year
  Sex: Male
  Weight: 85.2762 kg

DRUGS (4)
  1. GLYBURIDE [Suspect]
     Indication: DIABETES MELLITUS
     Dosage: 2.5 MG;BID;PO
     Route: 048
     Dates: start: 20110401, end: 20110618
  2. AMLODIPINE [Concomitant]
  3. METFORMIN HCL [Concomitant]
  4. LISINOPRIL [Concomitant]

REACTIONS (5)
  - PRODUCT LABEL ISSUE [None]
  - ROAD TRAFFIC ACCIDENT [None]
  - REFUSAL OF TREATMENT BY PATIENT [None]
  - PRODUCT QUALITY ISSUE [None]
  - LOSS OF CONSCIOUSNESS [None]
